FAERS Safety Report 8217948-2 (Version None)
Quarter: 2012Q1

REPORT INFORMATION
  Report Type: 
  Country: None (occurrence: None)
  Receive Date: 20120319
  Receipt Date: 20120309
  Transmission Date: 20120608
  Serious: Yes (Hospitalization)
  Sender: FDA-Public Use
  Company Number: US-BAYER-2011-052346

PATIENT
  Age: 29 Year
  Sex: Female
  Weight: 74.83 kg

DRUGS (3)
  1. ASCORBIC ACID [Concomitant]
  2. MULTI-VITAMINS [Concomitant]
  3. YAZ [Suspect]
     Dosage: UNK
     Dates: start: 20080101

REACTIONS (14)
  - CHOLECYSTITIS [None]
  - SCAR [None]
  - PAIN [None]
  - INJURY [None]
  - ANXIETY [None]
  - CHOLECYSTECTOMY [None]
  - CONSTIPATION [None]
  - DYSPEPSIA [None]
  - ABDOMINAL DISTENSION [None]
  - DIARRHOEA [None]
  - DEPRESSION [None]
  - EMOTIONAL DISORDER [None]
  - MEDICAL DIET [None]
  - FLATULENCE [None]
